FAERS Safety Report 14779795 (Version 1)
Quarter: 2018Q2

REPORT INFORMATION
  Report Type: Report from Study
  Country: CA (occurrence: CA)
  Receive Date: 20180419
  Receipt Date: 20180419
  Transmission Date: 20180711
  Serious: Yes (Other)
  Sender: FDA-Public Use
  Company Number: CA-TEVA-2018-CA-882678

PATIENT

DRUGS (3)
  1. PROCARBAZINE [Suspect]
     Active Substance: PROCARBAZINE
     Indication: GLIOMA
     Dosage: 100 MG/M2 FROM DAY 8 TO 22
     Route: 048
  2. LOMUSTINE. [Suspect]
     Active Substance: LOMUSTINE
     Indication: GLIOMA
     Dosage: 110 MG/M2 ON DAY 1
     Route: 065
  3. VINCRISTINE [Suspect]
     Active Substance: VINCRISTINE
     Indication: GLIOMA
     Dosage: 1.4 MG/M2 ON DAY 1 (MAXIMUM OF 2 MG) ON DAYS 8 AND 29
     Route: 065

REACTIONS (1)
  - Febrile neutropenia [Unknown]
